FAERS Safety Report 12767118 (Version 6)
Quarter: 2017Q2

REPORT INFORMATION
  Report Type: Spontaneous
  Country: CA (occurrence: CA)
  Receive Date: 20160921
  Receipt Date: 20170517
  Transmission Date: 20170830
  Serious: Yes (Other)
  Sender: FDA-Public Use
  Company Number: CA-PFIZER INC-2016439910

PATIENT
  Age: 72 Year
  Sex: Male

DRUGS (2)
  1. MORPHINE SULFATE. [Concomitant]
     Active Substance: MORPHINE SULFATE
     Dosage: UNK
  2. ADVIL [Suspect]
     Active Substance: IBUPROFEN
     Indication: PAIN
     Dosage: UNK
     Route: 048

REACTIONS (6)
  - Dysgeusia [Unknown]
  - Intentional product misuse [Unknown]
  - Product taste abnormal [Unknown]
  - Hypertension [Unknown]
  - Choking [Unknown]
  - Foreign body [Unknown]
